FAERS Safety Report 5288043-X (Version None)
Quarter: 2007Q1

REPORT INFORMATION
  Report Type: 
  Country: None (occurrence: None)
  Receive Date: 20070330
  Receipt Date: 20070315
  Transmission Date: 20070707
  Serious: Yes (Other)
  Sender: FDA-Public Use
  Company Number: CHPA2007US03591

PATIENT
  Age: 58 Year
  Sex: Female
  Weight: 57.1 kg

DRUGS (2)
  1. TRANSDERMAL-SCOP (NCH) (HYOSCINE HYDROBROMIDE) TRANS-THERAPEUTIC-SYSTE [Suspect]
     Indication: MOTION SICKNESS
     Dosage: 1.5 MG, ONCE/SINGLE, TRANSDERMAL
     Route: 062
     Dates: start: 20070225, end: 20070301
  2. ACTONEL [Concomitant]

REACTIONS (1)
  - VERTIGO [None]
